FAERS Safety Report 11724183 (Version 1)
Quarter: 2015Q4

REPORT INFORMATION
  Report Type: Spontaneous
  Country: US (occurrence: US)
  Receive Date: 20151111
  Receipt Date: 20151111
  Transmission Date: 20160304
  Serious: Yes (Other)
  Sender: FDA-Public Use
  Company Number: US-SUNOVION-2015SUN000828

PATIENT
  Age: 70 Year
  Sex: Female

DRUGS (2)
  1. XANAX [Concomitant]
     Active Substance: ALPRAZOLAM
     Dosage: UNK
  2. LATUDA [Suspect]
     Active Substance: LURASIDONE HYDROCHLORIDE
     Indication: ANXIETY
     Dosage: 40 MG, HS
     Route: 048

REACTIONS (7)
  - Fatigue [Unknown]
  - Suicidal ideation [Unknown]
  - Off label use [Unknown]
  - Pruritus [Unknown]
  - Urticaria [Unknown]
  - Weight decreased [Unknown]
  - Anxiety [Unknown]
